FAERS Safety Report 8033424-4 (Version None)
Quarter: 2012Q1

REPORT INFORMATION
  Report Type: 
  Country: None (occurrence: None)
  Receive Date: 20120110
  Receipt Date: 20111229
  Transmission Date: 20120608
  Serious: Yes (Other)
  Sender: FDA-Public Use
  Company Number: GB-UCBSA-048466

PATIENT
  Age: 20 Year
  Sex: Female
  Weight: 67 kg

DRUGS (4)
  1. NORGESTIMATE AND ETHINYL ESTRADIOL [Interacting]
     Indication: CONTRACEPTION
  2. PREGABALIN [Interacting]
     Indication: PAIN
     Route: 048
     Dates: start: 20111025, end: 20111130
  3. NAPROXEN [Interacting]
     Indication: PAIN
     Route: 048
     Dates: start: 20111027, end: 20111205
  4. ACETAMINOPHEN AND CODEINE PHOSPHATE [Suspect]
     Indication: PAIN

REACTIONS (3)
  - DRUG INTERACTION [None]
  - PREGNANCY ON ORAL CONTRACEPTIVE [None]
  - PREGNANCY [None]
